FAERS Safety Report 15440100 (Version 1)
Quarter: 2018Q3

REPORT INFORMATION
  Report Type: Spontaneous
  Country: US (occurrence: US)
  Receive Date: 20180925
  Receipt Date: 20180925
  Transmission Date: 20181010
  Serious: Yes (Other)
  Sender: FDA-Public Use
  Company Number: None

PATIENT
  Age: 61 Year
  Sex: Female

DRUGS (12)
  1. COSENTYX [Suspect]
     Active Substance: SECUKINUMAB
     Indication: PSORIASIS
     Dosage: ?          OTHER FREQUENCY:EVERY WEEK;?
     Route: 058
     Dates: start: 20180814
  2. VANOS 0.1% [Concomitant]
  3. LYRICA [Concomitant]
     Active Substance: PREGABALIN
  4. BETHAMETH DIP OIN 0.05% [Concomitant]
  5. CYMBALTA [Concomitant]
     Active Substance: DULOXETINE HYDROCHLORIDE
  6. VITAMIN D3 10000UNIT [Concomitant]
  7. CALCIUM 500MG [Concomitant]
  8. IRBESARTAN 150MG [Concomitant]
     Active Substance: IRBESARTAN
  9. LEVOTHYROXIN 100MCG [Concomitant]
  10. MIRAPEX 0.125MG [Concomitant]
  11. COQ?10 100MG [Concomitant]
  12. METOPROLOL 100MG [Concomitant]
     Active Substance: METOPROLOL

REACTIONS (2)
  - Drug dose omission [None]
  - Sepsis [None]

NARRATIVE: CASE EVENT DATE: 20180924
